FAERS Safety Report 18099619 (Version 1)
Quarter: 2020Q3

REPORT INFORMATION
  Report Type: Spontaneous
  Country: US (occurrence: US)
  Receive Date: 20200731
  Receipt Date: 20200731
  Transmission Date: 20201103
  Serious: Yes (Other)
  Sender: FDA-Public Use
  Company Number: US-OTONOMY INC.-2020OTO00002

PATIENT
  Age: 13 Year
  Sex: Female

DRUGS (1)
  1. CIPROFLOXACIN/DEXAMETHASONE [Suspect]
     Active Substance: CIPROFLOXACIN\DEXAMETHASONE
     Indication: OTITIS EXTERNA
     Dosage: 0.3%?0.1% FOUR DROPS INTO EAR
     Route: 061

REACTIONS (2)
  - Product deposit [Recovered/Resolved]
  - Deafness [Recovered/Resolved]
